FAERS Safety Report 10986667 (Version 5)
Quarter: 2017Q2

REPORT INFORMATION
  Report Type: Spontaneous
  Country: BY (occurrence: BY)
  Receive Date: 20150402
  Receipt Date: 20170522
  Transmission Date: 20170829
  Serious: Yes (Other)
  Sender: FDA-Public Use
  Company Number: 2015SGN00489

PATIENT
  Age: 19 Year
  Sex: Female

DRUGS (61)
  1. ADCETRIS [Suspect]
     Active Substance: BRENTUXIMAB VEDOTIN
     Dosage: 100 MG, QD
     Route: 042
     Dates: start: 20150310, end: 20150310
  2. BENDAMUSTINE [Concomitant]
     Active Substance: BENDAMUSTINE
     Dosage: 147 MG, BID
     Route: 042
     Dates: start: 20150310, end: 20150310
  3. ALUMINIUM PHOSPHATE [Concomitant]
     Active Substance: ALUMINUM PHOSPHATE
     Dosage: UNK
     Dates: start: 20150217, end: 20150217
  4. PLATELETS [Concomitant]
     Active Substance: HUMAN PLATELET, ALLOGENIC
     Indication: THROMBOCYTOPENIA
     Dosage: UNK
     Route: 042
     Dates: start: 20150124, end: 20150124
  5. PLATELETS [Concomitant]
     Active Substance: HUMAN PLATELET, ALLOGENIC
     Dosage: 200 MG, QD
     Route: 042
     Dates: start: 20150326, end: 20150326
  6. KYTRIL [Concomitant]
     Active Substance: GRANISETRON HYDROCHLORIDE
     Dosage: 2 MG, QD
     Route: 042
     Dates: start: 20150214, end: 20150215
  7. COTRIMOXAZOLE [Concomitant]
     Active Substance: SULFAMETHOXAZOLE\TRIMETHOPRIM
     Dosage: 2 MILLION IU, UNK
     Route: 048
     Dates: start: 20150126, end: 20150210
  8. DEXAMETHASONE. [Concomitant]
     Active Substance: DEXAMETHASONE
     Dosage: 16.3 MG, BID
     Route: 042
     Dates: start: 20150113, end: 20150215
  9. OMEPRAZOLE. [Concomitant]
     Active Substance: OMEPRAZOLE
     Dosage: 20 MG, QD
     Route: 048
     Dates: start: 20150212, end: 20150217
  10. COLISTIN                           /00013206/ [Concomitant]
     Dosage: 2 MILLION IU, BID
     Route: 048
     Dates: start: 20150122, end: 20150126
  11. PLATELETS [Concomitant]
     Active Substance: HUMAN PLATELET, ALLOGENIC
     Dosage: 200 MG, QD
     Route: 042
     Dates: start: 20150212, end: 20150212
  12. PLATELETS [Concomitant]
     Active Substance: HUMAN PLATELET, ALLOGENIC
     Dosage: 200 MG, QD
     Route: 042
     Dates: start: 20150224, end: 20150224
  13. PLATELETS [Concomitant]
     Active Substance: HUMAN PLATELET, ALLOGENIC
     Dosage: 200 MG, QD
     Route: 042
     Dates: start: 20150323, end: 20150323
  14. GRANOCYTE                          /03200101/ [Concomitant]
     Active Substance: LENOGRASTIM
     Dosage: 263 ?G, QD
     Route: 058
     Dates: start: 20150324, end: 20150324
  15. GRANOCYTE                          /03200101/ [Concomitant]
     Active Substance: LENOGRASTIM
     Dosage: 263 ?G, QD
     Route: 058
     Dates: start: 20150326, end: 20150326
  16. ADCETRIS [Suspect]
     Active Substance: BRENTUXIMAB VEDOTIN
     Dosage: 100 MG, QD
     Route: 042
     Dates: start: 20150213, end: 20150213
  17. ADCETRIS [Suspect]
     Active Substance: BRENTUXIMAB VEDOTIN
     Dosage: 100 MG, QD
     Route: 042
     Dates: start: 20150313, end: 20150313
  18. BENDAMUSTINE [Concomitant]
     Active Substance: BENDAMUSTINE
     Indication: HODGKIN^S DISEASE
     Dosage: 198 MG, BID
     Route: 042
     Dates: start: 20150122, end: 20150122
  19. BISEPTOL [Concomitant]
     Active Substance: SULFAMETHOXAZOLE\TRIMETHOPRIM
     Dosage: 480 MG, BID
     Route: 048
     Dates: start: 20150125, end: 20150126
  20. PLATELETS [Concomitant]
     Active Substance: HUMAN PLATELET, ALLOGENIC
     Dosage: 200 MG, QD
     Route: 042
     Dates: start: 20150313, end: 20150313
  21. OCTAGAM IMMUNE GLOBULIN (HUMAN) [Concomitant]
     Active Substance: HUMAN IMMUNOGLOBULIN G
     Indication: LEUKOPENIA
     Dosage: 5 G, QD
     Route: 042
     Dates: start: 20150130, end: 20150130
  22. OCTAGAM IMMUNE GLOBULIN (HUMAN) [Concomitant]
     Active Substance: HUMAN IMMUNOGLOBULIN G
     Dosage: 5 G, QD
     Route: 042
     Dates: start: 20150219, end: 20150219
  23. KYTRIL [Concomitant]
     Active Substance: GRANISETRON HYDROCHLORIDE
     Indication: PRODUCT USED FOR UNKNOWN INDICATION
     Dosage: 3 MG, QD
     Route: 042
     Dates: start: 20150214, end: 20150215
  24. COTRIMOXAZOLE [Concomitant]
     Active Substance: SULFAMETHOXAZOLE\TRIMETHOPRIM
     Indication: PRODUCT USED FOR UNKNOWN INDICATION
     Dosage: 48 MG, BID
     Route: 048
     Dates: start: 20150123, end: 20150123
  25. COTRIMOXAZOLE [Concomitant]
     Active Substance: SULFAMETHOXAZOLE\TRIMETHOPRIM
     Dosage: 480 MG, BID
     Route: 048
     Dates: start: 20150217, end: 20150306
  26. COTRIMOXAZOLE [Concomitant]
     Active Substance: SULFAMETHOXAZOLE\TRIMETHOPRIM
     Dosage: 960 MG, BID
     Route: 048
     Dates: start: 20150326
  27. AVELOX [Concomitant]
     Active Substance: MOXIFLOXACIN HYDROCHLORIDE
     Indication: PRODUCT USED FOR UNKNOWN INDICATION
     Dosage: UNK
     Dates: start: 20150321, end: 20150401
  28. ADCETRIS [Suspect]
     Active Substance: BRENTUXIMAB VEDOTIN
     Indication: HODGKIN^S DISEASE
     Dosage: 100 MG, QD
     Route: 042
     Dates: start: 20150122, end: 20150122
  29. DEXAMETHASONE. [Concomitant]
     Active Substance: DEXAMETHASONE
     Indication: HODGKIN^S DISEASE
     Dosage: 16.5 MG, BID
     Route: 042
     Dates: start: 20150122, end: 20150124
  30. ALUMINIUM PHOSPHATE [Concomitant]
     Active Substance: ALUMINUM PHOSPHATE
     Indication: PRODUCT USED FOR UNKNOWN INDICATION
     Dosage: UNK
     Route: 048
     Dates: start: 20150122, end: 20150124
  31. PLATELETS [Concomitant]
     Active Substance: HUMAN PLATELET, ALLOGENIC
     Dosage: 200 MG, QD
     Route: 042
     Dates: start: 20150309, end: 20150309
  32. PLATELETS [Concomitant]
     Active Substance: HUMAN PLATELET, ALLOGENIC
     Dosage: 200 MG, UNK
     Route: 042
     Dates: start: 20150416, end: 20150416
  33. CLEMASTINE [Concomitant]
     Active Substance: CLEMASTINE
     Dosage: UNK
  34. COTRIMOXAZOLE [Concomitant]
     Active Substance: SULFAMETHOXAZOLE\TRIMETHOPRIM
     Dosage: 480 MG, BID
     Route: 048
     Dates: start: 20150125, end: 20150126
  35. COTRIMOXAZOLE [Concomitant]
     Active Substance: SULFAMETHOXAZOLE\TRIMETHOPRIM
     Dosage: 2 MILLION IU, UNK
     Route: 048
     Dates: start: 20150122, end: 20150126
  36. DEXAMETHASONE. [Concomitant]
     Active Substance: DEXAMETHASONE
     Dosage: 16.4 MG, BID
     Route: 042
     Dates: start: 20150310, end: 20150312
  37. BISEPTOL [Concomitant]
     Active Substance: SULFAMETHOXAZOLE\TRIMETHOPRIM
     Dosage: 480 MG, BID
     Route: 048
     Dates: start: 20150123, end: 20150123
  38. PLATELETS [Concomitant]
     Active Substance: HUMAN PLATELET, ALLOGENIC
     Dosage: UNK
  39. PLATELETS [Concomitant]
     Active Substance: HUMAN PLATELET, ALLOGENIC
     Dosage: UNK
  40. FLUCONAZOLUM                       /00780601/ [Concomitant]
     Dosage: 300 MG, QD
     Route: 048
     Dates: start: 20150302
  41. GRANOCYTE                          /03200101/ [Concomitant]
     Active Substance: LENOGRASTIM
     Indication: NEUTROPENIA
     Dosage: 263 ?G, QD
     Route: 058
     Dates: start: 20150202, end: 20150202
  42. ALUMINIUM PHOSPHATE [Concomitant]
     Active Substance: ALUMINUM PHOSPHATE
     Dosage: UNK
     Route: 048
     Dates: start: 20150212, end: 20150217
  43. BISEPTOL [Concomitant]
     Active Substance: SULFAMETHOXAZOLE\TRIMETHOPRIM
     Dosage: 480 MG, BID
     Dates: start: 20150321, end: 20150401
  44. PLATELETS [Concomitant]
     Active Substance: HUMAN PLATELET, ALLOGENIC
     Dosage: 200 MG, QD
     Route: 042
     Dates: start: 20150316, end: 20150316
  45. FLUCONAZOLUM                       /00780601/ [Concomitant]
     Dosage: 300 MG, QD
     Route: 048
     Dates: start: 20150126, end: 20150126
  46. GRANOCYTE                          /03200101/ [Concomitant]
     Active Substance: LENOGRASTIM
     Dosage: 263 ?G, QD
     Route: 058
     Dates: start: 20150306, end: 20150306
  47. BENDAMUSTINE [Concomitant]
     Active Substance: BENDAMUSTINE
     Dosage: 146.7 MG, BID
     Route: 042
     Dates: start: 20150214, end: 20150214
  48. OMEPRAZOLE. [Concomitant]
     Active Substance: OMEPRAZOLE
     Indication: PRODUCT USED FOR UNKNOWN INDICATION
     Dosage: 20 MG, QD
     Route: 048
     Dates: start: 20150122, end: 20150124
  49. BISEPTOL [Concomitant]
     Active Substance: SULFAMETHOXAZOLE\TRIMETHOPRIM
     Dosage: 480 MG, BID
     Route: 048
     Dates: start: 20150217, end: 20150306
  50. BISEPTOL [Concomitant]
     Active Substance: SULFAMETHOXAZOLE\TRIMETHOPRIM
     Dosage: 960 MG, BID
     Route: 048
     Dates: start: 20150326, end: 20150401
  51. COLISTIN                           /00013206/ [Concomitant]
     Dosage: 2 MILLION IU, BID
     Route: 048
     Dates: start: 20150126, end: 20150210
  52. PLATELETS [Concomitant]
     Active Substance: HUMAN PLATELET, ALLOGENIC
     Dosage: 200 MG, QD
     Route: 042
     Dates: start: 20150303, end: 20150303
  53. PLATELETS [Concomitant]
     Active Substance: HUMAN PLATELET, ALLOGENIC
     Dosage: 200 MG, QD
     Route: 042
     Dates: start: 20150306, end: 20150306
  54. PLATELETS [Concomitant]
     Active Substance: HUMAN PLATELET, ALLOGENIC
     Dosage: 200 MG, QD
     Route: 042
     Dates: start: 20150401, end: 20150401
  55. PLATELETS [Concomitant]
     Active Substance: HUMAN PLATELET, ALLOGENIC
     Dosage: 200 MG, QD
     Route: 042
     Dates: start: 20150408, end: 20150408
  56. PLATELETS [Concomitant]
     Active Substance: HUMAN PLATELET, ALLOGENIC
     Dosage: 200 MG, QD
     Route: 042
     Dates: start: 20150417, end: 20150417
  57. CLEMASTINE [Concomitant]
     Active Substance: CLEMASTINE
     Indication: PRODUCT USED FOR UNKNOWN INDICATION
     Dosage: 1 ML, QD
     Route: 042
     Dates: start: 20150213, end: 20150213
  58. ZYVOX [Concomitant]
     Active Substance: LINEZOLID
     Indication: PRODUCT USED FOR UNKNOWN INDICATION
     Dosage: UNK
     Route: 065
     Dates: start: 20150321, end: 20150401
  59. OMEPRAZOLE. [Concomitant]
     Active Substance: OMEPRAZOLE
     Dosage: 20 MG, QD
     Route: 042
     Dates: start: 20150126, end: 20150202
  60. FLUCONAZOLUM                       /00780601/ [Concomitant]
     Dosage: 150 MG, QD
     Route: 048
     Dates: start: 20150217, end: 20150302
  61. GRANOCYTE                          /03200101/ [Concomitant]
     Active Substance: LENOGRASTIM
     Dosage: 263 ?G, QD
     Route: 058
     Dates: start: 20150320, end: 20150320

REACTIONS (13)
  - Leukopenia [Recovered/Resolved]
  - Thrombocytopenia [Recovered/Resolved with Sequelae]
  - Thrombocytopenia [Recovered/Resolved]
  - Peripheral sensory neuropathy [Unknown]
  - Anaemia [Recovered/Resolved]
  - Febrile neutropenia [Recovered/Resolved]
  - Febrile neutropenia [Recovered/Resolved]
  - Leukopenia [Recovered/Resolved]
  - Cytomegalovirus test positive [Recovered/Resolved]
  - Neutropenia [Recovered/Resolved with Sequelae]
  - Cytopenia [Recovered/Resolved]
  - Upper respiratory tract infection [Recovered/Resolved]
  - Anaemia [Recovered/Resolved with Sequelae]

NARRATIVE: CASE EVENT DATE: 2015
